FAERS Safety Report 7278737-9 (Version None)
Quarter: 2011Q1

REPORT INFORMATION
  Report Type: 
  Country: None (occurrence: None)
  Receive Date: 20110207
  Receipt Date: 20110203
  Transmission Date: 20110831
  Serious: Yes (Hospitalization, Other)
  Sender: FDA-Public Use
  Company Number: MX-B.I. PHARMACEUTICALS,INC./RIDGEFIELD-2011-MX-00017MX

PATIENT
  Sex: Female

DRUGS (5)
  1. TRAMADOL HYDROCHLORIDE/ACETAMINOPHEN [Concomitant]
     Indication: ANALGESIC THERAPY
     Dosage: 1 TABLET EACH 8 HOURS
     Route: 048
     Dates: start: 20101203, end: 20101208
  2. DABIGATRAN ETEXILATE [Suspect]
     Indication: THROMBOSIS PROPHYLAXIS
     Dosage: 150 MG
     Route: 048
     Dates: start: 20101203, end: 20101218
  3. CEPHALEXIN [Concomitant]
     Indication: ANTIBIOTIC PROPHYLAXIS
     Dosage: 1500 MG
     Route: 048
     Dates: start: 20101203
  4. OMEPRAZOLE [Concomitant]
     Dosage: 20 MG
     Route: 048
     Dates: start: 20101203, end: 20101218
  5. DICLOFENAC [Concomitant]
     Indication: ANTIINFLAMMATORY THERAPY
     Dosage: 100 MG
     Route: 048
     Dates: start: 20101203, end: 20101217

REACTIONS (5)
  - VAGINAL HAEMORRHAGE [None]
  - EPISTAXIS [None]
  - URETHRAL HAEMORRHAGE [None]
  - GINGIVAL BLEEDING [None]
  - ANAEMIA [None]
